FAERS Safety Report 17071976 (Version 1)
Quarter: 2019Q4

REPORT INFORMATION
  Report Type: Spontaneous
  Country: BR (occurrence: BR)
  Receive Date: 20191125
  Receipt Date: 20191125
  Transmission Date: 20200122
  Serious: Yes (Other)
  Sender: FDA-Public Use
  Company Number: BR-SA-2019SA316193

PATIENT
  Age: 83 Year
  Sex: Female
  Weight: 45 kg

DRUGS (4)
  1. RIFALDIN [Suspect]
     Active Substance: RIFAMPIN
     Dosage: UNK
     Dates: start: 201809, end: 201902
  2. RIFALDIN [Suspect]
     Active Substance: RIFAMPIN
     Indication: ERYSIPELAS
     Dosage: 2 DF, QD (2 TABLETS IN MORNING)
     Route: 048
     Dates: start: 201411, end: 2014
  3. RIFALDIN [Suspect]
     Active Substance: RIFAMPIN
     Indication: ERYTHEMA
     Dosage: UNK
     Dates: start: 2016, end: 2016
  4. TYLENOL [Concomitant]
     Active Substance: ACETAMINOPHEN
     Indication: PAIN
     Dosage: 1 DF, PRN (1 TABLET DAILY WHEN SHE HAD PAIN)
     Route: 048

REACTIONS (4)
  - Erythema [Not Recovered/Not Resolved]
  - Erysipelas [Not Recovered/Not Resolved]
  - Unevaluable event [Not Recovered/Not Resolved]
  - Wound [Unknown]

NARRATIVE: CASE EVENT DATE: 201911
